FAERS Safety Report 24916906 (Version 2)
Quarter: 2025Q1

REPORT INFORMATION
  Report Type: Spontaneous
  Country: CA (occurrence: CA)
  Receive Date: 20250203
  Receipt Date: 20250313
  Transmission Date: 20250408
  Serious: Yes (Other)
  Sender: AUROBINDO
  Company Number: CA-AUROBINDO-AUR-APL-2025-005567

PATIENT
  Age: 52 Year
  Sex: Female

DRUGS (7)
  1. ATORVASTATIN [Suspect]
     Active Substance: ATORVASTATIN
     Indication: Lipids abnormal
     Dosage: 80 MILLIGRAM, ONCE A DAY
     Route: 065
  2. EZETIMIBE [Suspect]
     Active Substance: EZETIMIBE
     Indication: Lipids abnormal
     Dosage: 10 MILLIGRAM, ONCE A DAY
     Route: 065
  3. ROSUVASTATIN [Suspect]
     Active Substance: ROSUVASTATIN
     Indication: Lipids abnormal
     Dosage: 40 MILLIGRAM, ONCE A DAY
     Route: 065
  4. LOMITAPIDE [Concomitant]
     Active Substance: LOMITAPIDE
     Indication: Product used for unknown indication
     Route: 065
  5. LOMITAPIDE [Concomitant]
     Active Substance: LOMITAPIDE
     Dosage: 20 MILLIGRAM, ONCE A DAY
     Route: 065
  6. EVINACUMAB [Concomitant]
     Active Substance: EVINACUMAB
     Indication: Product used for unknown indication
     Route: 042
  7. UNSPECIFIED INGREDIENT [Concomitant]
     Active Substance: UNSPECIFIED INGREDIENT
     Indication: Product used for unknown indication
     Route: 065

REACTIONS (1)
  - Drug ineffective [Unknown]
